FAERS Safety Report 23011220 (Version 2)
Quarter: 2023Q4

REPORT INFORMATION
  Report Type: Other
  Country: CA (occurrence: CA)
  Receive Date: 20230929
  Receipt Date: 20231228
  Transmission Date: 20240109
  Serious: Yes (Other)
  Sender: FDA-Public Use
  Company Number: CA-INTERCEPT-PM2020000805

PATIENT
  Age: 53 Year
  Sex: Female

DRUGS (3)
  1. OCALIVA [Suspect]
     Active Substance: OBETICHOLIC ACID
     Indication: Primary biliary cholangitis
     Dosage: 5 MG, QD
     Route: 048
     Dates: start: 20190520
  2. OCALIVA [Suspect]
     Active Substance: OBETICHOLIC ACID
     Dosage: 10 MG, QD
     Route: 048
     Dates: start: 20210716
  3. URSO                               /00465701/ [Concomitant]
     Indication: Primary biliary cholangitis
     Dosage: 1000 MG, QD
     Route: 048
     Dates: start: 20160713

REACTIONS (3)
  - Hepatic fibrosis [Unknown]
  - Blood bilirubin increased [Recovered/Resolved]
  - Blood alkaline phosphatase abnormal [Not Recovered/Not Resolved]

NARRATIVE: CASE EVENT DATE: 20200113
